FAERS Safety Report 7433135-X (Version None)
Quarter: 2011Q2

REPORT INFORMATION
  Report Type: 
  Country: None (occurrence: None)
  Receive Date: 20110415
  Receipt Date: 20110401
  Transmission Date: 20111010
  Serious: Yes (Hospitalization)
  Sender: FDA-Public Use
  Company Number: 030586

PATIENT
  Age: 45 Year
  Sex: Female

DRUGS (11)
  1. PANTOPRAZOLE [Concomitant]
  2. ATENOLOL [Concomitant]
  3. PROPOXYPHENE HYDROCHLORIDE [Concomitant]
  4. ACETAMINOPHEN [Concomitant]
  5. ALBUTEROL SULFATE AND IPRATROPIUM BROMIDE [Concomitant]
  6. LEVETIRACETAM [Suspect]
     Indication: PARTIAL SEIZURES
     Dosage: 500 MG BID, (500 MG BID, RESTARTED);
  7. METHIMAZOLE [Suspect]
     Indication: HYPERTHYROIDISM
  8. ALENDRONATE SODIUM [Concomitant]
  9. OXYGEN [Concomitant]
  10. REGULAR INSULIN [Concomitant]
  11. FEXOFENADINE [Concomitant]

REACTIONS (1)
  - ACUTE GENERALISED EXANTHEMATOUS PUSTULOSIS [None]
